FAERS Safety Report 14276827 (Version 2)
Quarter: 2018Q4

REPORT INFORMATION
  Report Type: Spontaneous
  Country: US (occurrence: US)
  Receive Date: 20171211
  Receipt Date: 20181107
  Transmission Date: 20190204
  Serious: Yes (Other)
  Sender: FDA-Public Use
  Company Number: US-OTSUKA-2017_011150

PATIENT
  Sex: Female

DRUGS (4)
  1. ABILIFY [Suspect]
     Active Substance: ARIPIPRAZOLE
     Indication: POST-TRAUMATIC STRESS DISORDER
  2. ABILIFY [Suspect]
     Active Substance: ARIPIPRAZOLE
     Indication: DEPRESSION
  3. ABILIFY [Suspect]
     Active Substance: ARIPIPRAZOLE
     Indication: MAJOR DEPRESSION
     Dosage: UNK, DOSAGE: 10MG AND 5 MG
     Route: 065
     Dates: start: 20110126, end: 20160530
  4. ABILIFY [Suspect]
     Active Substance: ARIPIPRAZOLE
     Indication: ANXIETY

REACTIONS (11)
  - Condition aggravated [Recovering/Resolving]
  - Impulsive behaviour [Unknown]
  - Increased appetite [Unknown]
  - Suicide attempt [Unknown]
  - Weight increased [Unknown]
  - Product use in unapproved indication [Unknown]
  - Obsessive-compulsive disorder [Recovered/Resolved]
  - Gambling disorder [Recovering/Resolving]
  - Anxiety [Unknown]
  - Suicidal ideation [Unknown]
  - Economic problem [Unknown]

NARRATIVE: CASE EVENT DATE: 2013
